FAERS Safety Report 10037266 (Version 1)
Quarter: 2014Q1

REPORT INFORMATION
  Report Type: Spontaneous
  Country: US (occurrence: US)
  Receive Date: 20140326
  Receipt Date: 20140326
  Transmission Date: 20141002
  Serious: Yes (Other)
  Sender: FDA-Public Use
  Company Number: US-UCBSA-114866

PATIENT
  Sex: Male

DRUGS (8)
  1. KEPPRA [Suspect]
     Indication: CONVULSION
     Dosage: 1000 MG
     Route: 048
  2. PROTONIX [Concomitant]
     Dosage: 40 MG
     Route: 048
  3. LISINOPRIL [Concomitant]
     Dosage: 40 MG
     Route: 048
  4. METOPROLOL TARTRATE [Concomitant]
     Dosage: 25 MG
     Route: 048
  5. AMLODIPINE BESILATE [Concomitant]
     Dosage: 10 MG
     Route: 048
  6. FIORICET [Concomitant]
     Indication: MIGRAINE
     Dosage: 60-326-40 MG; DAILY DOSE: 1 TAB Q 4 HRS PRN; MAX 6 TABS IN 24 HRS
     Route: 048
  7. EPIPEN [Concomitant]
     Dosage: 0.3 MG/0.3 ML DEVI
  8. LORAZEPAM [Concomitant]
     Dosage: 1 MG; DOSE: 1 ONCE 30 MIN PRIOR TO MRI
     Route: 048

REACTIONS (7)
  - Subarachnoid haemorrhage [Not Recovered/Not Resolved]
  - Hypertension [Not Recovered/Not Resolved]
  - Hypokalaemia [Not Recovered/Not Resolved]
  - Obesity [Not Recovered/Not Resolved]
  - Arthralgia [Not Recovered/Not Resolved]
  - Feeding disorder [Not Recovered/Not Resolved]
  - Communication disorder [Not Recovered/Not Resolved]
